FAERS Safety Report 4705923-1 (Version None)
Quarter: 2005Q2

REPORT INFORMATION
  Report Type: 
  Country: None (occurrence: None)
  Receive Date: 20050630
  Receipt Date: 20050620
  Transmission Date: 20051028
  Serious: Yes (Hospitalization)
  Sender: FDA-Public Use
  Company Number: 2005-129794-NL

PATIENT
  Age: 71 Year
  Sex: Male

DRUGS (3)
  1. VECURONIUM BROMIDE [Suspect]
     Dosage: 5 MG Q1HR/8 MG Q1HR INTRAVENOUS DRIP
     Route: 041
     Dates: start: 20050530, end: 20050530
  2. VECURONIUM BROMIDE [Suspect]
     Dosage: 5 MG Q1HR/8 MG Q1HR INTRAVENOUS DRIP
     Route: 041
     Dates: start: 20050531, end: 20050614
  3. STEROID AGENT [Suspect]
     Dosage: DF

REACTIONS (3)
  - ANAESTHETIC COMPLICATION PULMONARY [None]
  - NEUROMUSCULAR BLOCK PROLONGED [None]
  - POST PROCEDURAL COMPLICATION [None]
